FAERS Safety Report 22845745 (Version 2)
Quarter: 2023Q4

REPORT INFORMATION
  Report Type: Spontaneous
  Country: US (occurrence: US)
  Receive Date: 20230821
  Receipt Date: 20231122
  Transmission Date: 20240109
  Serious: No
  Sender: FDA-Public Use
  Company Number: US-AVADEL CNS PHARMACEUTICALS, LLC-2023AVA00007

PATIENT
  Sex: Male
  Weight: 108.84 kg

DRUGS (15)
  1. LUMRYZ [Suspect]
     Active Substance: SODIUM OXYBATE
     Indication: Narcolepsy
     Dosage: 9 G, ONCE NIGHTLY
     Route: 048
     Dates: start: 20230614, end: 202307
  2. LUMRYZ [Suspect]
     Active Substance: SODIUM OXYBATE
     Indication: Cataplexy
     Dosage: 9 G, ONCE NIGHTLY
     Dates: start: 2023
  3. XYREM [Suspect]
     Active Substance: SODIUM OXYBATE
     Indication: Narcolepsy
     Dosage: UNK
     Dates: start: 2023
  4. XYREM [Suspect]
     Active Substance: SODIUM OXYBATE
     Indication: Cataplexy
  5. ZALEPLON [Concomitant]
     Active Substance: ZALEPLON
     Dosage: UNK, 2X/MONTH
  6. LUNESTA [Concomitant]
     Active Substance: ESZOPICLONE
     Dosage: UNK, 2X/MONTH
  7. DIAZEPAM [Concomitant]
     Active Substance: DIAZEPAM
     Dosage: PRE-PROCEDURE (CORTICOSTEROIDS INJECT IN SPINE)
     Route: 008
  8. SYNTHROID [Concomitant]
     Active Substance: LEVOTHYROXINE SODIUM
     Dosage: 25 ?G, 1X/DAY
  9. WELLBUTRIN XL [Concomitant]
     Active Substance: BUPROPION HYDROCHLORIDE
     Dosage: 300 MG, 1X/DAY
  10. NIFEDIPINE [Concomitant]
     Active Substance: NIFEDIPINE
     Dosage: 20 MG, 1X/DAY
  11. VALSARTAN [Concomitant]
     Active Substance: VALSARTAN
     Dosage: 320 MG, 1X/DAY
  12. METFORMIN HYDROCHLORIDE [Concomitant]
     Active Substance: METFORMIN HYDROCHLORIDE
     Dosage: 500 MG, 2X/DAY
  13. ATORVASTATIN CALCIUM [Concomitant]
     Active Substance: ATORVASTATIN CALCIUM
     Dosage: 40 MG, 1X/DAY
  14. UNSPECIFIED INGREDIENT [Concomitant]
     Active Substance: UNSPECIFIED INGREDIENT
  15. DIAZEPAM [Concomitant]
     Active Substance: DIAZEPAM

REACTIONS (6)
  - Insomnia [Recovering/Resolving]
  - Performance status decreased [Recovered/Resolved]
  - Middle insomnia [Unknown]
  - Sudden onset of sleep [Unknown]
  - Drug ineffective [Unknown]
  - Intentional product misuse [Recovered/Resolved]

NARRATIVE: CASE EVENT DATE: 20230101
